FAERS Safety Report 7583544-3 (Version None)
Quarter: 2011Q2

REPORT INFORMATION
  Report Type: 
  Country: None (occurrence: None)
  Receive Date: 20110527
  Receipt Date: 20110124
  Transmission Date: 20111010
  Serious: Yes (Hospitalization, Other)
  Sender: FDA-Public Use
  Company Number: US201002003442

PATIENT
  Age: 60 Year
  Sex: Female
  Weight: 90.7 kg

DRUGS (17)
  1. LIPITOR [Concomitant]
  2. ACTOS [Concomitant]
  3. SIMVASTATIN [Concomitant]
  4. HYDROCHLOROTHIAZIDE [Concomitant]
  5. LEXAPRO [Concomitant]
  6. OXYCODONE HCL [Concomitant]
  7. BYETTA [Suspect]
     Dosage: 10 UG, 2/D
     Dates: start: 20051025
  8. METOPROLOL TARTRATE [Concomitant]
  9. METFORMIN HCL [Concomitant]
  10. PREVACID [Concomitant]
  11. IMDUR [Concomitant]
  12. DIAZEPAM [Concomitant]
  13. GLIPIZIDE [Concomitant]
  14. PLAVIX [Concomitant]
  15. ASPIRIN/USA/(ACETYLSALICYLIC ACID) [Concomitant]
  16. EXENATIDE PEN (EXENATIDE PEN) [Concomitant]
  17. FLUOXETINE [Concomitant]

REACTIONS (2)
  - PANCREATITIS [None]
  - ABDOMINAL PAIN [None]
